FAERS Safety Report 23693639 (Version 1)
Quarter: 2024Q1

REPORT INFORMATION
  Report Type: Spontaneous
  Country: US (occurrence: None)
  Receive Date: 20240331
  Receipt Date: 20240331
  Transmission Date: 20240412
  Serious: Yes (Hospitalization)
  Sender: FDA-Public Use
  Company Number: None

PATIENT
  Age: 30 Year
  Sex: Female
  Weight: 51.75 kg

DRUGS (2)
  1. LEVOFLOXACIN [Suspect]
     Active Substance: LEVOFLOXACIN
     Indication: Beta haemolytic streptococcal infection
     Dosage: 1 TABLET AT BEDTIME ORAL
     Route: 048
     Dates: start: 20240326, end: 20240327
  2. probiotics [Concomitant]

REACTIONS (4)
  - Anxiety [None]
  - Insomnia [None]
  - Heart rate irregular [None]
  - Discomfort [None]

NARRATIVE: CASE EVENT DATE: 20240327
